FAERS Safety Report 19235326 (Version 4)
Quarter: 2021Q2

REPORT INFORMATION
  Report Type: Spontaneous
  Country: BE (occurrence: BE)
  Receive Date: 20210509
  Receipt Date: 20210614
  Transmission Date: 20210717
  Serious: Yes (Hospitalization)
  Sender: FDA-Public Use
  Company Number: BE-BEH-2021131462

PATIENT
  Age: 16 Year
  Sex: Male
  Weight: 67 kg

DRUGS (1)
  1. PRIVIGEN [Suspect]
     Active Substance: HUMAN IMMUNOGLOBULIN G
     Indication: LEUKAEMIA
     Dosage: 20 GRAM
     Route: 042

REACTIONS (3)
  - Shock [Unknown]
  - Hypersensitivity [Unknown]
  - Pyrexia [Unknown]
